FAERS Safety Report 12548605 (Version 1)
Quarter: 2016Q3

REPORT INFORMATION
  Report Type: Report from Study
  Country: CA (occurrence: CA)
  Receive Date: 20160712
  Receipt Date: 20160712
  Transmission Date: 20161109
  Serious: Yes (Other)
  Sender: FDA-Public Use
  Company Number: CA-JNJFOC-20160525482

PATIENT
  Age: 67 Year
  Sex: Female

DRUGS (16)
  1. REMICADE [Suspect]
     Active Substance: INFLIXIMAB
     Indication: CROHN^S DISEASE
     Route: 042
  2. ROSUVASTATIN. [Concomitant]
     Active Substance: ROSUVASTATIN
     Route: 065
  3. ATENOLOL. [Concomitant]
     Active Substance: ATENOLOL
     Route: 065
  4. BUSCOPAN [Concomitant]
     Active Substance: BUTYLSCOPOLAMINE BROMIDE
     Route: 065
  5. RISEDRONATE [Concomitant]
     Active Substance: RISEDRONATE SODIUM
     Route: 065
  6. AMLODIPINE [Concomitant]
     Active Substance: AMLODIPINE BESYLATE
     Route: 065
  7. FLOVENT [Concomitant]
     Active Substance: FLUTICASONE PROPIONATE
     Route: 065
  8. ENDOCET [Concomitant]
     Active Substance: ACETAMINOPHEN\OXYCODONE HYDROCHLORIDE
     Dosage: PRN (AS NECESSARY)
     Route: 065
  9. REMICADE [Suspect]
     Active Substance: INFLIXIMAB
     Indication: CROHN^S DISEASE
     Route: 042
  10. RABEPRAZOLE [Concomitant]
     Active Substance: RABEPRAZOLE
     Route: 065
  11. GABAPENTIN. [Concomitant]
     Active Substance: GABAPENTIN
     Route: 065
  12. OXAZEPAM. [Concomitant]
     Active Substance: OXAZEPAM
     Route: 065
  13. REMICADE [Suspect]
     Active Substance: INFLIXIMAB
     Indication: CROHN^S DISEASE
     Route: 042
  14. APO HYDRO [Concomitant]
     Route: 065
  15. FOSINOPRIL [Concomitant]
     Active Substance: FOSINOPRIL
     Route: 065
  16. PRAMIPEXOLE. [Concomitant]
     Active Substance: PRAMIPEXOLE
     Route: 065

REACTIONS (11)
  - Urinary incontinence [Recovered/Resolved]
  - Nausea [Recovered/Resolved]
  - Tachycardia [Unknown]
  - Asthenia [Recovered/Resolved]
  - Infusion related reaction [Recovered/Resolved]
  - Feeling hot [Recovered/Resolved]
  - Off label use [Unknown]
  - Unresponsive to stimuli [Recovered/Resolved]
  - Hyperhidrosis [Recovered/Resolved]
  - Angina pectoris [Unknown]
  - Product use issue [Unknown]

NARRATIVE: CASE EVENT DATE: 2016
